FAERS Safety Report 12321933 (Version 1)
Quarter: 2016Q2

REPORT INFORMATION
  Report Type: Spontaneous
  Country: US (occurrence: None)
  Receive Date: 20160429
  Receipt Date: 20160429
  Transmission Date: 20160815
  Serious: Yes (Other)
  Sender: FDA-Public Use
  Company Number: None

PATIENT
  Age: 17 Year
  Sex: Male
  Weight: 75.6 kg

DRUGS (1)
  1. ALPHANATE [Suspect]
     Active Substance: HUMAN COAGULATION FACTOR VIII/VON WILLEBRAND FACTOR COMPLEX
     Indication: HAEMORRHAGIC DIATHESIS
     Route: 042
     Dates: start: 20130628

REACTIONS (1)
  - Hand fracture [None]

NARRATIVE: CASE EVENT DATE: 20160427
